FAERS Safety Report 11481840 (Version 1)
Quarter: 2015Q3

REPORT INFORMATION
  Report Type: Spontaneous
  Country: US (occurrence: US)
  Receive Date: 20150909
  Receipt Date: 20150909
  Transmission Date: 20151125
  Serious: No
  Sender: FDA-Public Use
  Company Number: US-JAZZ-2014-US-013338

PATIENT
  Age: 45 Year
  Sex: Female
  Weight: 63.49 kg

DRUGS (2)
  1. XYREM [Suspect]
     Active Substance: SODIUM OXYBATE
     Indication: CATAPLEXY
     Dosage: 2.25 G, BID
     Dates: start: 20141010, end: 201410
  2. XYREM [Suspect]
     Active Substance: SODIUM OXYBATE
     Indication: NARCOLEPSY
     Dosage: 2.25 G, BID
     Route: 048
     Dates: start: 20141027

REACTIONS (6)
  - Night sweats [Recovered/Resolved]
  - Drug dose omission [Unknown]
  - Nausea [Recovered/Resolved]
  - Headache [Recovered/Resolved]
  - Feeling abnormal [Recovered/Resolved]
  - Condition aggravated [Recovered/Resolved]

NARRATIVE: CASE EVENT DATE: 20141010
